FAERS Safety Report 7071757-9 (Version None)
Quarter: 2010Q4

REPORT INFORMATION
  Report Type: 
  Country: None (occurrence: None)
  Receive Date: 20101029
  Receipt Date: 20091016
  Transmission Date: 20110411
  Serious: No
  Sender: FDA-Public Use
  Company Number: A0812194A

PATIENT
  Age: 77 Year
  Sex: Female

DRUGS (10)
  1. ADVAIR DISKUS 100/50 [Suspect]
     Indication: CHRONIC OBSTRUCTIVE PULMONARY DISEASE
     Dosage: 1PUFF TWICE PER DAY
     Route: 055
  2. ATENOLOL [Concomitant]
  3. LOTREL [Concomitant]
  4. MIACALCIN [Concomitant]
  5. FLUTICASONE PROPIONATE [Concomitant]
  6. CLIDINIUM BROMIDE+CHLORDIAZEPOXIDE [Concomitant]
  7. VITAMIN D [Concomitant]
  8. POTASSIUM CHLORIDE [Concomitant]
  9. CALTRATE + D [Concomitant]
  10. ZYRTEC [Concomitant]

REACTIONS (2)
  - MUSCLE SPASMS [None]
  - VISION BLURRED [None]
